FAERS Safety Report 11838679 (Version 2)
Quarter: 2018Q1

REPORT INFORMATION
  Report Type: Spontaneous
  Country: US (occurrence: US)
  Receive Date: 20151215
  Receipt Date: 20180115
  Transmission Date: 20180508
  Serious: Yes (Other)
  Sender: FDA-Public Use
  Company Number: US-SA-2015SA081725

PATIENT
  Age: 71 Year
  Sex: Female
  Weight: 54.4 kg

DRUGS (8)
  1. TAXOTERE [Suspect]
     Active Substance: DOCETAXEL
     Indication: OVARIAN CANCER
     Dosage: THREE WEEKS ON AND ONE WEEK OFF
     Route: 042
     Dates: start: 20150202, end: 20150202
  2. TAXOTERE [Suspect]
     Active Substance: DOCETAXEL
     Indication: OVARIAN CANCER
     Dosage: THREE WEEKS ON AND ONE WEEK OFF
     Route: 042
     Dates: start: 20150819, end: 20150819
  3. DEXAMETHASONE. [Concomitant]
     Active Substance: DEXAMETHASONE
     Dosage: INFUSION
  4. LORAZEPAM. [Concomitant]
     Active Substance: LORAZEPAM
     Indication: NAUSEA
  5. CYANOCOBALAMIN. [Concomitant]
     Active Substance: CYANOCOBALAMIN
     Indication: ANAEMIA
     Dates: start: 201307
  6. DECADRON [Concomitant]
     Active Substance: DEXAMETHASONE
     Dosage: 12 HURS AND 6 HOURS BEFORE TREATMENT
  7. NEUPOGEN [Concomitant]
     Active Substance: FILGRASTIM
  8. TAXOL W/CARBOPLATIN [Concomitant]
     Dosage: FROM 8/13 THROUGH 05/14

REACTIONS (22)
  - Cardiac disorder [Unknown]
  - Palpitations [Unknown]
  - Dehydration [Unknown]
  - Poor quality sleep [Unknown]
  - Swelling face [Unknown]
  - Cough [Recovering/Resolving]
  - Fatigue [Unknown]
  - Erythema of eyelid [Unknown]
  - Wheezing [Recovering/Resolving]
  - Swelling [Recovering/Resolving]
  - Breath sounds abnormal [Recovering/Resolving]
  - Lacrimation increased [Unknown]
  - Eyelid oedema [Unknown]
  - Dyspnoea [Recovering/Resolving]
  - Eye swelling [Recovering/Resolving]
  - Candida infection [Unknown]
  - Fluid retention [Unknown]
  - Swelling [Unknown]
  - Pleural effusion [Recovered/Resolved]
  - Asthenia [Unknown]
  - Abdominal distension [Recovering/Resolving]
  - Erythema [Unknown]

NARRATIVE: CASE EVENT DATE: 2015
